FAERS Safety Report 19455325 (Version 1)
Quarter: 2021Q2

REPORT INFORMATION
  Report Type: Spontaneous
  Country: US (occurrence: US)
  Receive Date: 20210623
  Receipt Date: 20210623
  Transmission Date: 20210717
  Serious: Yes (Death)
  Sender: FDA-Public Use
  Company Number: None

PATIENT
  Age: 45 Year
  Sex: Female

DRUGS (7)
  1. MAVYRET [Suspect]
     Active Substance: GLECAPREVIR\PIBRENTASVIR
     Indication: HEPATITIS C
     Route: 048
     Dates: start: 20210416
  2. ZYVOX [Concomitant]
     Active Substance: LINEZOLID
  3. MYCOPHENOLATE [Concomitant]
     Active Substance: MYCOPHENOLIC ACID
  4. LEVETIRACITAM [Concomitant]
     Active Substance: LEVETIRACETAM
  5. ISONIAZIS [Concomitant]
  6. TACROLIMUS. [Concomitant]
     Active Substance: TACROLIMUS
  7. ENTECAVIR. [Concomitant]
     Active Substance: ENTECAVIR

REACTIONS (4)
  - Septic shock [None]
  - Acute kidney injury [None]
  - Cardio-respiratory arrest [None]
  - Hypoxia [None]

NARRATIVE: CASE EVENT DATE: 20210618
